FAERS Safety Report 7367596-1 (Version None)
Quarter: 2011Q1

REPORT INFORMATION
  Report Type: 
  Country: None (occurrence: None)
  Receive Date: 20110322
  Receipt Date: 20110226
  Transmission Date: 20110831
  Serious: No
  Sender: FDA-Public Use
  Company Number: US-B.I. PHARMACEUTICALS,INC./RIDGEFIELD-2011-BP-07089BP

PATIENT
  Sex: Female

DRUGS (5)
  1. SYNTHROID [Concomitant]
     Indication: HYPOTHYROIDISM
  2. EYE SHOT [Concomitant]
     Indication: MACULAR DEGENERATION
     Dosage: FORM: INJECTION
  3. VERAPAMIL [Concomitant]
     Indication: HYPERTENSION
  4. PRADAXA [Suspect]
     Indication: ATRIAL FIBRILLATION
     Dosage: 300 MG
     Route: 048
     Dates: start: 20101203
  5. METOPROLOL [Concomitant]
     Indication: ATRIAL FIBRILLATION

REACTIONS (1)
  - OCULAR HYPERAEMIA [None]
